FAERS Safety Report 21792969 (Version 1)
Quarter: 2022Q4

REPORT INFORMATION
  Report Type: Spontaneous
  Country: CN (occurrence: CN)
  Receive Date: 20221229
  Receipt Date: 20221229
  Transmission Date: 20230113
  Serious: No
  Sender: FDA-Public Use
  Company Number: CN-ALKEM LABORATORIES LIMITED-CN-ALKEM-2022-11721

PATIENT
  Age: 2 Month

DRUGS (4)
  1. SIROLIMUS [Suspect]
     Active Substance: SIROLIMUS
     Indication: Oral haemangioma
     Dosage: 0.8 MILLIGRAM/SQ. METER, BID (TWICE-A-DAY)
     Route: 065
  2. SIROLIMUS [Suspect]
     Active Substance: SIROLIMUS
     Indication: Noninfective sialoadenitis
  3. SIROLIMUS [Suspect]
     Active Substance: SIROLIMUS
     Indication: Oral neoplasm benign
  4. SIROLIMUS [Suspect]
     Active Substance: SIROLIMUS
     Indication: Dependence on oxygen therapy

REACTIONS (2)
  - Toxicity to various agents [Unknown]
  - Oral pain [Unknown]
